FAERS Safety Report 9227536 (Version 2)
Quarter: 2013Q2

REPORT INFORMATION
  Report Type: Report from Study
  Country: GB (occurrence: GB)
  Receive Date: 20130412
  Receipt Date: 20130521
  Transmission Date: 20140414
  Serious: Yes (Other)
  Sender: FDA-Public Use
  Company Number: GB-VERTEX PHARMACEUTICALS INC.-2013-004776

PATIENT
  Sex: Male

DRUGS (6)
  1. VX-950 (TELAPREVIR) [Suspect]
     Indication: HEPATITIS C
     Dosage: 750 MG, TID
     Route: 048
     Dates: start: 20120918, end: 201212
  2. VX-950 (TELAPREVIR) [Suspect]
     Dosage: UNK
     Dates: end: 20130130
  3. RIBAVIRIN [Concomitant]
     Indication: HEPATITIS C
     Dosage: DOSAGE FORM: UNSPECIFIED
     Route: 048
     Dates: end: 20130130
  4. RIBAVIRIN [Concomitant]
     Dosage: DOSAGE FORM: UNSPECIFIED
     Route: 048
     Dates: start: 20120918, end: 201212
  5. PEG INTERFERON [Concomitant]
     Indication: HEPATITIS C
     Dosage: DOSAGE FORM: UNSPECIFIED
     Route: 058
     Dates: start: 20120918, end: 201212
  6. PEG INTERFERON [Concomitant]
     Dosage: DOSAGE FORM: UNSPECIFIED
     Route: 058
     Dates: end: 20130130

REACTIONS (2)
  - Off label use [Unknown]
  - Hepatitis C RNA fluctuation [Unknown]
